FAERS Safety Report 17432687 (Version 2)
Quarter: 2020Q1

REPORT INFORMATION
  Report Type: Spontaneous
  Country: AT (occurrence: AT)
  Receive Date: 20200218
  Receipt Date: 20200330
  Transmission Date: 20200409
  Serious: Yes (Hospitalization, Disabling, Other)
  Sender: FDA-Public Use
  Company Number: AT-BRISTOL-MYERS SQUIBB COMPANY-BMS-2020-009245

PATIENT
  Age: 77 Year
  Sex: Female
  Weight: 65 kg

DRUGS (12)
  1. CONCOR COR [Concomitant]
     Active Substance: BISOPROLOL FUMARATE
     Indication: CARDIAC FAILURE
     Dosage: 1.25 MILLIGRAM, QD
     Route: 048
     Dates: start: 201608
  2. MAXI KALZ [Concomitant]
     Indication: OSTEOPOROSIS
     Dosage: 1000 MILLIGRAM
     Route: 048
     Dates: start: 201607
  3. DIGIMERCK [Concomitant]
     Active Substance: DIGITOXIN
     Indication: PRODUCT USED FOR UNKNOWN INDICATION
     Dosage: UNK
     Route: 065
  4. PANTOLOC [PANTOPRAZOLE] [Concomitant]
     Active Substance: PANTOPRAZOLE SODIUM
     Indication: PRODUCT USED FOR UNKNOWN INDICATION
     Dosage: UNK
     Route: 065
  5. CANDESARTAN HCT [Concomitant]
     Active Substance: CANDESARTAN CILEXETIL\HYDROCHLOROTHIAZIDE
     Indication: HYPERTENSION
     Dosage: 16/12.5 MG, QD
     Route: 048
     Dates: start: 201607
  6. OLEOVIT D3 [Concomitant]
     Active Substance: CHOLECALCIFEROL
     Indication: VITAMIN D DECREASED
     Dosage: 30 GTT DROPS
     Route: 048
     Dates: start: 201607
  7. ROSUVASTATIN. [Concomitant]
     Active Substance: ROSUVASTATIN
     Indication: HYPERCHOLESTEROLAEMIA
     Dosage: 10 MILLIGRAM, QD
     Route: 065
     Dates: start: 202001
  8. ELIQUIS [Suspect]
     Active Substance: APIXABAN
     Indication: CEREBROVASCULAR ACCIDENT PROPHYLAXIS
     Dosage: 5 MILLIGRAM, BID
     Route: 048
     Dates: start: 20181107
  9. RISPERDAL [Concomitant]
     Active Substance: RISPERIDONE
     Indication: PRODUCT USED FOR UNKNOWN INDICATION
     Dosage: UNK
     Route: 065
  10. IBANDRONIC ACID. [Concomitant]
     Active Substance: IBANDRONIC ACID
     Indication: OSTEOPOROSIS
     Dosage: 150 MILLIGRAM, QMO
     Route: 048
     Dates: start: 201007
  11. AMLODIPINE [Concomitant]
     Active Substance: AMLODIPINE BESYLATE
     Indication: PRODUCT USED FOR UNKNOWN INDICATION
     Dosage: UNK
     Route: 065
  12. VIMPAT [Concomitant]
     Active Substance: LACOSAMIDE
     Indication: PRODUCT USED FOR UNKNOWN INDICATION
     Dosage: UNK
     Route: 065

REACTIONS (2)
  - Pneumonia aspiration [Recovering/Resolving]
  - Cerebral haemorrhage [Recovered/Resolved with Sequelae]

NARRATIVE: CASE EVENT DATE: 20200117
